FAERS Safety Report 17147983 (Version 2)
Quarter: 2019Q4

REPORT INFORMATION
  Report Type: Report from Study
  Country: US (occurrence: US)
  Receive Date: 20191212
  Receipt Date: 20191231
  Transmission Date: 20200122
  Serious: Yes (Hospitalization, Other)
  Sender: FDA-Public Use
  Company Number: US-GILEAD-2019-0442039

PATIENT
  Age: 47 Year
  Sex: Male
  Weight: 102.49 kg

DRUGS (3)
  1. AMBRISENTAN [Suspect]
     Active Substance: AMBRISENTAN
     Indication: PULMONARY HYPERTENSION
     Dosage: 10 MG, QD
     Route: 048
     Dates: start: 20191113
  2. UPTRAVI [Concomitant]
     Active Substance: SELEXIPAG
  3. SILDENAFIL. [Concomitant]
     Active Substance: SILDENAFIL

REACTIONS (6)
  - Fatigue [Unknown]
  - Tooth infection [Recovered/Resolved]
  - Malaise [Not Recovered/Not Resolved]
  - Asthenia [Unknown]
  - Dyspnoea [Unknown]
  - Sepsis [Not Recovered/Not Resolved]

NARRATIVE: CASE EVENT DATE: 20191109
